FAERS Safety Report 15345425 (Version 1)
Quarter: 2018Q3

REPORT INFORMATION
  Report Type: Spontaneous
  Country: US (occurrence: US)
  Receive Date: 20180903
  Receipt Date: 20180903
  Transmission Date: 20181010
  Serious: No
  Sender: FDA-Public Use
  Company Number: US-009507513-1808USA009304

PATIENT
  Sex: Male

DRUGS (1)
  1. BELSOMRA [Suspect]
     Active Substance: SUVOREXANT
     Dosage: 15 MG 30 CT ( 3X10 UU BLISTER CARD) 1 TABLET EVERY NIGHT AT BEDTIME AS NEEDED
     Route: 048

REACTIONS (3)
  - Drug dose omission [Unknown]
  - Product use complaint [Unknown]
  - No adverse event [Unknown]
